FAERS Safety Report 20463100 (Version 1)
Quarter: 2022Q1

REPORT INFORMATION
  Report Type: Spontaneous
  Country: US (occurrence: US)
  Receive Date: 20220211
  Receipt Date: 20220211
  Transmission Date: 20220423
  Serious: No
  Sender: FDA-Public Use
  Company Number: US-PERRIGO-21US005399

PATIENT
  Age: 53 Year
  Sex: Male
  Weight: 158.73 kg

DRUGS (1)
  1. NAPROXEN SODIUM [Suspect]
     Active Substance: NAPROXEN SODIUM
     Indication: Oedema
     Dosage: 220 MG, QD
     Route: 048
     Dates: start: 20210417

REACTIONS (2)
  - Abdominal discomfort [Recovering/Resolving]
  - Off label use [Not Recovered/Not Resolved]

NARRATIVE: CASE EVENT DATE: 20210417
